FAERS Safety Report 22114653 (Version 2)
Quarter: 2023Q1

REPORT INFORMATION
  Report Type: Spontaneous
  Country: US (occurrence: US)
  Receive Date: 20230320
  Receipt Date: 20230323
  Transmission Date: 20230417
  Serious: No
  Sender: FDA-Public Use
  Company Number: US-SANOFI-01532578

PATIENT
  Age: 57 Year
  Sex: Female

DRUGS (1)
  1. DUPIXENT [Suspect]
     Active Substance: DUPILUMAB
     Indication: Dermatitis atopic
     Dosage: 300 MG, QOW
     Route: 058

REACTIONS (5)
  - Injection site rash [Unknown]
  - Injection site discolouration [Unknown]
  - Injection site pain [Unknown]
  - Product dose omission in error [Unknown]
  - Product preparation error [Unknown]

NARRATIVE: CASE EVENT DATE: 20230313
